FAERS Safety Report 6178335-4 (Version None)
Quarter: 2009Q2

REPORT INFORMATION
  Report Type: 
  Country: None (occurrence: None)
  Receive Date: 20090504
  Receipt Date: 20090430
  Transmission Date: 20091009
  Serious: Yes (Death)
  Sender: FDA-Public Use
  Company Number: LB-SANOFI-SYNTHELABO-F01200900425

PATIENT
  Age: 65 Year
  Sex: Male

DRUGS (6)
  1. FLUOROURACIL [Suspect]
     Dosage: UNK
  2. CORDARONE [Concomitant]
  3. VASTAREL [Concomitant]
  4. DIGOXIN [Concomitant]
  5. LASIX [Concomitant]
  6. ELOXATIN [Suspect]
     Indication: COLORECTAL CANCER
     Dosage: UNK

REACTIONS (1)
  - CARDIOVASCULAR DISORDER [None]
